FAERS Safety Report 5006578-1 (Version None)
Quarter: 2006Q2

REPORT INFORMATION
  Report Type: 
  Country: None (occurrence: None)
  Receive Date: 20060519
  Receipt Date: 20060509
  Transmission Date: 20061013
  Serious: Yes (Other)
  Sender: FDA-Public Use
  Company Number: US-AVENTIS-200614206US

PATIENT
  Sex: Female
  Weight: 100.9 kg

DRUGS (10)
  1. LANTUS [Suspect]
     Indication: DIABETES MELLITUS NON-INSULIN-DEPENDENT
     Dates: start: 20040101, end: 20041201
  2. GLIPIZIDE [Concomitant]
     Dosage: DOSE: UNK
  3. LOVASTATIN [Concomitant]
     Dosage: DOSE: UNK
  4. ANTIDEPRESSANTS [Concomitant]
     Dosage: DOSE: UNK
  5. ABILIFY [Concomitant]
     Dosage: DOSE: UNK
  6. DIOVAN [Concomitant]
     Dosage: DOSE: UNK
  7. GEMFIBROZIL [Concomitant]
     Dosage: DOSE: UNK
  8. IBUPROFEN [Concomitant]
  9. OXYCODONE [Concomitant]
     Dosage: DOSE: UNK
  10. PRILOSEC [Concomitant]
     Dosage: DOSE: UNK

REACTIONS (13)
  - CYST [None]
  - DYSPNOEA [None]
  - FALL [None]
  - HEART RATE INCREASED [None]
  - HYPERSENSITIVITY [None]
  - NERVE INJURY [None]
  - NEUROPATHY [None]
  - OEDEMA [None]
  - RASH [None]
  - TREATMENT NONCOMPLIANCE [None]
  - WEIGHT FLUCTUATION [None]
  - WEIGHT INCREASED [None]
  - WHEEZING [None]
